FAERS Safety Report 10189678 (Version 1)
Quarter: 2014Q2

REPORT INFORMATION
  Report Type: Spontaneous
  Country: US (occurrence: US)
  Receive Date: 20140522
  Receipt Date: 20140522
  Transmission Date: 20141212
  Serious: Yes (Other)
  Sender: FDA-Public Use
  Company Number: US-SA-2014SA028733

PATIENT
  Age: 64 Year
  Sex: Female

DRUGS (3)
  1. LANTUS SOLOSTAR [Suspect]
     Dosage: DOSE:8 UNIT(S)
     Route: 065
     Dates: start: 20140228
  2. HUMALOG [Suspect]
     Dosage: DOSE:2-3 UNITS BEFORE EACH MEAL
     Route: 065
  3. SOLOSTAR [Concomitant]

REACTIONS (5)
  - Blood glucose decreased [Unknown]
  - Dizziness [Unknown]
  - Headache [Unknown]
  - Nausea [Unknown]
  - Rhinorrhoea [Recovered/Resolved]
